FAERS Safety Report 5124585-5 (Version None)
Quarter: 2006Q4

REPORT INFORMATION
  Report Type: 
  Country: None (occurrence: None)
  Receive Date: 20061011
  Receipt Date: 20061002
  Transmission Date: 20070319
  Serious: Yes (Other)
  Sender: FDA-Public Use
  Company Number: US-JNJFOC-20061000905

PATIENT
  Sex: Female
  Weight: 83.92 kg

DRUGS (1)
  1. REMICADE [Suspect]
     Indication: PSORIATIC ARTHROPATHY
     Dosage: ON 13 UNKNOWN CONCOMITANT MEDICATIONS.
     Route: 042

REACTIONS (2)
  - HYPOKINESIA [None]
  - TREMOR [None]
